FAERS Safety Report 5465479-5 (Version None)
Quarter: 2007Q3

REPORT INFORMATION
  Report Type: 
  Country: None (occurrence: None)
  Receive Date: 20070920
  Receipt Date: 20070920
  Transmission Date: 20080115
  Serious: Yes (Other)
  Sender: FDA-Public Use
  Company Number: None

PATIENT
  Age: 68 Year
  Sex: Female
  Weight: 99.7913 kg

DRUGS (1)
  1. TRANDOLAPRIL [Suspect]
     Indication: HYPERTENSION
     Dosage: ONE DAILY PO
     Route: 048
     Dates: start: 20070517, end: 20070911

REACTIONS (2)
  - BLOOD PRESSURE INADEQUATELY CONTROLLED [None]
  - PHARMACEUTICAL PRODUCT COMPLAINT [None]
